FAERS Safety Report 8277816-7 (Version None)
Quarter: 2012Q1

REPORT INFORMATION
  Report Type: 
  Country: None (occurrence: None)
  Receive Date: 20120312
  Receipt Date: 20120209
  Transmission Date: 20120608
  Serious: No
  Sender: FDA-Public Use
  Company Number: 2012SP007657

PATIENT
  Sex: Female

DRUGS (4)
  1. EMSAM [Concomitant]
  2. THORAZINE [Concomitant]
  3. LITHIUM [Concomitant]
  4. SAPHRIS [Suspect]
     Indication: PRODUCT USED FOR UNKNOWN INDICATION
     Dosage: 15 MG, HS, SL
     Route: 060
     Dates: start: 20120101, end: 20120209

REACTIONS (2)
  - BIPOLAR I DISORDER [None]
  - INAPPROPRIATE SCHEDULE OF DRUG ADMINISTRATION [None]
